FAERS Safety Report 4626210-6 (Version None)
Quarter: 2005Q2

REPORT INFORMATION
  Report Type: 
  Country: None (occurrence: None)
  Receive Date: 20050404
  Receipt Date: 20050325
  Transmission Date: 20051028
  Serious: Yes (Other)
  Sender: FDA-Public Use
  Company Number: US-JNJFOC-20050201154

PATIENT
  Age: 12 Year
  Sex: Female

DRUGS (2)
  1. CHILDREN'S TYLENOL [Suspect]
     Route: 049
  2. CHILDREN'S TYLENOL [Suspect]
     Indication: HEADACHE
     Dosage: UNKNOWN
     Route: 049

REACTIONS (4)
  - ARTHRALGIA [None]
  - MUSCLE TIGHTNESS [None]
  - PAIN IN EXTREMITY [None]
  - POSTURING [None]
